FAERS Safety Report 14407093 (Version 7)
Quarter: 2020Q3

REPORT INFORMATION
  Report Type: Report from Study
  Country: None (occurrence: CA)
  Receive Date: 20180118
  Receipt Date: 20200811
  Transmission Date: 20201102
  Serious: Yes (Hospitalization, Other)
  Sender: FDA-Public Use
  Company Number: CA-ABBVIE-18K-028-2224271-00

PATIENT
  Age: 49 Year
  Sex: Male

DRUGS (3)
  1. HUMIRA [Suspect]
     Active Substance: ADALIMUMAB
     Indication: CROHN^S DISEASE
     Route: 058
     Dates: start: 20171130, end: 2018
  2. HUMIRA [Suspect]
     Active Substance: ADALIMUMAB
     Route: 058
     Dates: start: 2018
  3. IRON [Suspect]
     Active Substance: IRON
     Indication: BLOOD IRON DECREASED
     Route: 065
     Dates: end: 2018

REACTIONS (35)
  - Intestinal obstruction [Not Recovered/Not Resolved]
  - Fatigue [Not Recovered/Not Resolved]
  - Intentional product misuse [Unknown]
  - Frequent bowel movements [Not Recovered/Not Resolved]
  - Drug level changed [Not Recovered/Not Resolved]
  - Dry skin [Unknown]
  - Abdominal pain [Unknown]
  - Loss of personal independence in daily activities [Not Recovered/Not Resolved]
  - Visual impairment [Not Recovered/Not Resolved]
  - Haematochezia [Recovered/Resolved]
  - Crohn^s disease [Not Recovered/Not Resolved]
  - Alopecia [Not Recovered/Not Resolved]
  - Blood iron decreased [Recovered/Resolved]
  - Laboratory test abnormal [Not Recovered/Not Resolved]
  - Dry eye [Unknown]
  - Diarrhoea [Not Recovered/Not Resolved]
  - Adverse drug reaction [Unknown]
  - Pain [Not Recovered/Not Resolved]
  - Cataract [Unknown]
  - Malaise [Not Recovered/Not Resolved]
  - Haematochezia [Not Recovered/Not Resolved]
  - Night sweats [Unknown]
  - Pyrexia [Unknown]
  - Acne [Not Recovered/Not Resolved]
  - General physical health deterioration [Unknown]
  - Blood uric acid increased [Not Recovered/Not Resolved]
  - Blood creatine phosphokinase increased [Not Recovered/Not Resolved]
  - Blood iron decreased [Unknown]
  - Abdominal discomfort [Not Recovered/Not Resolved]
  - Tenderness [Unknown]
  - Skin ulcer [Recovered/Resolved]
  - Mood altered [Not Recovered/Not Resolved]
  - Haemoglobin decreased [Not Recovered/Not Resolved]
  - Headache [Recovering/Resolving]
  - Arthralgia [Not Recovered/Not Resolved]

NARRATIVE: CASE EVENT DATE: 2017
